FAERS Safety Report 21908325 (Version 2)
Quarter: 2023Q1

REPORT INFORMATION
  Report Type: Spontaneous
  Country: US (occurrence: US)
  Receive Date: 20230125
  Receipt Date: 20230126
  Transmission Date: 20230418
  Serious: Yes (Other)
  Sender: FDA-Public Use
  Company Number: US-PFIZER INC-202200826210

PATIENT
  Age: 60 Year
  Sex: Female
  Weight: 70.31 kg

DRUGS (1)
  1. ESTRING [Suspect]
     Active Substance: ESTRADIOL
     Indication: Hysterectomy
     Dosage: 2 MG, EVERY 3 MONTHS (1 RING EVERY 3 MONTHS)

REACTIONS (3)
  - Breast cancer [Unknown]
  - Off label use [Unknown]
  - Product prescribing issue [Unknown]
